FAERS Safety Report 6523072-7 (Version None)
Quarter: 2009Q4

REPORT INFORMATION
  Report Type: 
  Country: None (occurrence: None)
  Receive Date: 20091222
  Receipt Date: 20091208
  Transmission Date: 20100525
  Serious: Yes (Other)
  Sender: FDA-Public Use
  Company Number: SPV1-2009-02494

PATIENT
  Age: 11 Year
  Sex: Male
  Weight: 39 kg

DRUGS (3)
  1. DAYTRANA [Suspect]
     Indication: ATTENTION DEFICIT/HYPERACTIVITY DISORDER
     Dosage: 10 MG, 1X/DAY:DAY, TRANSDERMAL; 20 MG, 1X/DAY:QD, TRANSDERMAL
     Route: 062
     Dates: start: 20091118, end: 20091202
  2. DAYTRANA [Suspect]
     Indication: ATTENTION DEFICIT/HYPERACTIVITY DISORDER
     Dosage: 10 MG, 1X/DAY:DAY, TRANSDERMAL; 20 MG, 1X/DAY:QD, TRANSDERMAL
     Route: 062
     Dates: start: 20091203, end: 20091205
  3. SERTRALINE HCL [Concomitant]

REACTIONS (5)
  - CRYING [None]
  - DEPRESSED MOOD [None]
  - DRUG EFFECT DECREASED [None]
  - SELF INJURIOUS BEHAVIOUR [None]
  - SUICIDAL IDEATION [None]
